FAERS Safety Report 17648736 (Version 1)
Quarter: 2020Q2

REPORT INFORMATION
  Report Type: Report from Study
  Country: US (occurrence: US)
  Receive Date: 20200409
  Receipt Date: 20200409
  Transmission Date: 20200713
  Serious: Yes (Other)
  Sender: FDA-Public Use
  Company Number: US-ROCHE-2576776

PATIENT
  Sex: Female

DRUGS (1)
  1. OCREVUS [Suspect]
     Active Substance: OCRELIZUMAB
     Indication: RELAPSING MULTIPLE SCLEROSIS
     Dosage: ON 29/AUG/2018, 27/FEB/2019, 24/SEP/2019, THE PATIENT RECEIVED OCRELIZUMAB INFUSION.
     Route: 065
     Dates: start: 20180227

REACTIONS (1)
  - Infection [Recovered/Resolved]
